FAERS Safety Report 24288952 (Version 1)
Quarter: 2024Q3

REPORT INFORMATION
  Report Type: Spontaneous
  Country: US (occurrence: US)
  Receive Date: 20240906
  Receipt Date: 20240906
  Transmission Date: 20241017
  Serious: No
  Sender: ABBVIE
  Company Number: US-ABBVIE-5907736

PATIENT
  Age: 38 Year
  Sex: Female

DRUGS (6)
  1. BOTOX COSMETIC [Suspect]
     Active Substance: ONABOTULINUMTOXINA
     Indication: Skin wrinkling
     Dosage: TIME INTERVAL: AS NECESSARY: BOTOX FREQUENCY WAS REPORTED AS EVERY SIX MONTHS.
     Route: 030
     Dates: start: 2021, end: 2021
  2. BOTOX COSMETIC [Suspect]
     Active Substance: ONABOTULINUMTOXINA
     Indication: Skin wrinkling
     Dosage: TIME INTERVAL: AS NECESSARY: BOTOX FREQUENCY WAS REPORTED AS EVERY SIX MONTHS.
     Route: 030
     Dates: start: 2021, end: 2021
  3. BOTOX COSMETIC [Suspect]
     Active Substance: ONABOTULINUMTOXINA
     Indication: Skin wrinkling
     Dosage: TIME INTERVAL: AS NECESSARY: BOTOX FREQUENCY WAS REPORTED AS EVERY SIX MONTHS.
     Route: 030
     Dates: start: 2021, end: 2021
  4. BOTOX COSMETIC [Suspect]
     Active Substance: ONABOTULINUMTOXINA
     Indication: Skin wrinkling
     Dosage: TIME INTERVAL: AS NECESSARY: BOTOX FREQUENCY WAS REPORTED AS EVERY SIX MONTHS.
     Route: 030
     Dates: start: 202403, end: 202403
  5. BOTOX COSMETIC [Suspect]
     Active Substance: ONABOTULINUMTOXINA
     Indication: Skin wrinkling
     Dosage: TIME INTERVAL: AS NECESSARY: BOTOX FREQUENCY WAS REPORTED AS EVERY SIX MONTHS.
     Route: 030
     Dates: start: 202403, end: 202403
  6. BOTOX COSMETIC [Suspect]
     Active Substance: ONABOTULINUMTOXINA
     Indication: Skin wrinkling
     Dosage: TIME INTERVAL: AS NECESSARY: BOTOX FREQUENCY WAS REPORTED AS EVERY SIX MONTHS.
     Route: 030
     Dates: start: 202403, end: 202403

REACTIONS (1)
  - Drug ineffective [Not Recovered/Not Resolved]

NARRATIVE: CASE EVENT DATE: 20240101
